FAERS Safety Report 19104679 (Version 4)
Quarter: 2025Q1

REPORT INFORMATION
  Report Type: Report from Study
  Country: JP (occurrence: JP)
  Receive Date: 20210407
  Receipt Date: 20250310
  Transmission Date: 20250409
  Serious: Yes (Death, Hospitalization, Other)
  Sender: PFIZER
  Company Number: JP-ONO-BJ201815200

PATIENT
  Age: 66 Year
  Sex: Female
  Weight: 53.5 kg

DRUGS (3)
  1. BRAFTOVI [Suspect]
     Active Substance: ENCORAFENIB
     Indication: Malignant melanoma
     Dosage: 50 MG, EVERYDAY
     Route: 048
     Dates: start: 20200107, end: 20200107
  2. OPDIVO [Suspect]
     Active Substance: NIVOLUMAB
     Indication: Malignant melanoma
     Route: 041
     Dates: start: 20180404, end: 20180711
  3. YERVOY [Suspect]
     Active Substance: IPILIMUMAB
     Indication: Malignant melanoma
     Route: 041
     Dates: start: 20180822, end: 20181024

REACTIONS (6)
  - Malignant melanoma [Fatal]
  - Malignant neoplasm progression [Fatal]
  - Drug eruption [Recovered/Resolved]
  - Hypophysitis [Recovering/Resolving]
  - Adrenal insufficiency [Unknown]
  - Hypothyroidism [Recovering/Resolving]

NARRATIVE: CASE EVENT DATE: 20180613
